FAERS Safety Report 9355838 (Version 2)
Quarter: 2013Q3

REPORT INFORMATION
  Report Type: Report from Study
  Country: JP (occurrence: JP)
  Receive Date: 20130619
  Receipt Date: 20130731
  Transmission Date: 20140515
  Serious: Yes (Hospitalization)
  Sender: FDA-Public Use
  Company Number: JP-NAPPMUNDI-GBR-2013-0014576

PATIENT
  Age: 71 Year
  Sex: Female
  Weight: 42 kg

DRUGS (7)
  1. BTDS PATCH [Suspect]
     Indication: ANALGESIC THERAPY
     Dosage: 10 MCG, Q1H
     Route: 062
     Dates: start: 20121011, end: 20121017
  2. BTDS PATCH [Suspect]
     Dosage: 5 MCG, Q1H
     Route: 062
     Dates: start: 20121005, end: 20121011
  3. LINOLOSAL [Concomitant]
     Indication: LUMBAR SPINAL STENOSIS
     Dosage: 4 MG, PRN
     Route: 008
     Dates: start: 20121005, end: 20121005
  4. HYDROXOCOBALAMINE [Concomitant]
     Indication: LUMBAR SPINAL STENOSIS
     Dosage: 1 MG, PRN
     Route: 008
     Dates: start: 20121005, end: 20121005
  5. NAUZELIN [Concomitant]
     Indication: PROPHYLAXIS
     Dosage: 3 DF, PRN
     Route: 048
     Dates: start: 20121005, end: 20121007
  6. LOXONIN [Concomitant]
     Indication: ANALGESIC THERAPY
     Dosage: 2 DF, DAILY
     Route: 048
     Dates: start: 20121003, end: 20121005
  7. OPALMON [Concomitant]
     Indication: ANALGESIC THERAPY
     Dosage: 2 DF, DAILY
     Route: 048
     Dates: start: 20121003, end: 20121017

REACTIONS (1)
  - Lumbar spinal stenosis [Recovering/Resolving]
